FAERS Safety Report 14570405 (Version 1)
Quarter: 2018Q1

REPORT INFORMATION
  Report Type: Spontaneous
  Country: KR (occurrence: KR)
  Receive Date: 20180226
  Receipt Date: 20180226
  Transmission Date: 20180509
  Serious: Yes (Life-Threatening, Other)
  Sender: FDA-Public Use
  Company Number: KR-CONCORDIA PHARMACEUTICALS INC.-E2B_00009974

PATIENT
  Age: 64 Year
  Sex: Female

DRUGS (4)
  1. CYCLOPHOSPHAMIDE. [Suspect]
     Active Substance: CYCLOPHOSPHAMIDE
     Indication: NODAL MARGINAL ZONE B-CELL LYMPHOMA
     Dosage: EVERY 3 WEEKS; CYCLICAL;  R-CVP
  2. PREDNISOLONE. [Suspect]
     Active Substance: PREDNISOLONE
     Indication: NODAL MARGINAL ZONE B-CELL LYMPHOMA
     Dosage: EVERY 3 WEEKS; CYCLICAL; R-CVP
  3. VINCRISTINE [Suspect]
     Active Substance: VINCRISTINE
     Indication: NODAL MARGINAL ZONE B-CELL LYMPHOMA
     Dosage: EVERY 3 WEEKS; CYCLICAL; R-CVP
  4. RITUXIMAB. [Suspect]
     Active Substance: RITUXIMAB
     Indication: NODAL MARGINAL ZONE B-CELL LYMPHOMA
     Dosage: EVERY 3 WEEKS; CYCLICAL;  R-CVP

REACTIONS (4)
  - Neutropenia [Unknown]
  - Vomiting [Unknown]
  - Nausea [Unknown]
  - Asthenia [Unknown]
